FAERS Safety Report 8528497-6 (Version None)
Quarter: 2012Q3

REPORT INFORMATION
  Report Type: 
  Country: None (occurrence: None)
  Receive Date: 20120723
  Receipt Date: 20120716
  Transmission Date: 20120928
  Serious: Yes (Other)
  Sender: FDA-Public Use
  Company Number: GB-009507513-1207GBR006782

PATIENT

DRUGS (2)
  1. LOSARTAN POTASSIUM [Suspect]
     Indication: HYPERTENSION
     Dosage: 25 MG, UNK
     Route: 048
     Dates: start: 20120608, end: 20120609
  2. VERAPAMIL [Concomitant]
     Dosage: 240 MG, UNK
     Route: 048
     Dates: start: 20101221

REACTIONS (1)
  - ERYTHEMA MULTIFORME [None]
